FAERS Safety Report 23998282 (Version 4)
Quarter: 2024Q4

REPORT INFORMATION
  Report Type: Spontaneous
  Country: US (occurrence: US)
  Receive Date: 20240621
  Receipt Date: 20241111
  Transmission Date: 20250115
  Serious: Yes (Other)
  Sender: SANOFI AVENTIS
  Company Number: US-SA-SAC20240614000980

PATIENT
  Age: 43 Year
  Sex: Female

DRUGS (41)
  1. DUPIXENT [Suspect]
     Active Substance: DUPILUMAB
     Indication: Dermatitis atopic
     Dosage: 300 MG, QOW
     Route: 058
     Dates: start: 20240329
  2. MYCOPHENOLATE MOFETIL [Suspect]
     Active Substance: MYCOPHENOLATE MOFETIL
     Dosage: UNK
  3. ALPRAZOLAM [Concomitant]
     Active Substance: ALPRAZOLAM
     Dosage: UNK
  4. HYDROCODONE BITARTRATE AND ACETAMINOPHEN [Concomitant]
     Active Substance: ACETAMINOPHEN\HYDROCODONE BITARTRATE
     Dosage: UNK
  5. DEXAMETHASONE PHOSPHATE [Concomitant]
     Active Substance: DEXAMETHASONE PHOSPHATE
     Dosage: UNK
  6. CELECOXIB [Concomitant]
     Active Substance: CELECOXIB
     Dosage: UNK
  7. FLUCONAZOLE [Concomitant]
     Active Substance: FLUCONAZOLE
     Dosage: UNK
  8. KETOROLAC [Concomitant]
     Active Substance: KETOROLAC TROMETHAMINE
     Dosage: UNK
  9. LANSOPRAZOLE [Concomitant]
     Active Substance: LANSOPRAZOLE
     Dosage: UNK
  10. OMEPRAZOLE [Concomitant]
     Active Substance: OMEPRAZOLE
     Dosage: UNK
  11. ONDANSETRON [Concomitant]
     Active Substance: ONDANSETRON
     Dosage: UNK
  12. OXYCODONE [Concomitant]
     Active Substance: OXYCODONE
     Dosage: UNK
  13. PRENATAL 19 [Concomitant]
     Active Substance: .ALPHA.-TOCOPHEROL ACETATE, DL-\.BETA.-CAROTENE\ASCORBIC ACID\CALCIUM CARBONATE\CALCIUM PANTOTHENATE
     Dosage: UNK
  14. ONDANSETRON [Concomitant]
     Active Substance: ONDANSETRON
     Dosage: UNK
  15. METHENAMINE HIPPURATE [Concomitant]
     Active Substance: METHENAMINE HIPPURATE
     Dosage: UNK
  16. AMPHETAMINE [Concomitant]
     Active Substance: AMPHETAMINE
  17. BENZHYDROCODONE AND ACETAMINOPHEN [Concomitant]
     Active Substance: ACETAMINOPHEN\BENZHYDROCODONE HYDROCHLORIDE
  18. ALBUTEROL SULFATE [Concomitant]
     Active Substance: ALBUTEROL SULFATE
     Dosage: UNK
  19. ALENDRONATE [Concomitant]
     Active Substance: ALENDRONATE SODIUM
  20. BELBUCA [Concomitant]
     Active Substance: BUPRENORPHINE HYDROCHLORIDE
     Dosage: UNK; BELBUCA MIS 300MCG
  21. BELBUCA [Concomitant]
     Active Substance: BUPRENORPHINE HYDROCHLORIDE
  22. BELBUCA [Concomitant]
     Active Substance: BUPRENORPHINE HYDROCHLORIDE
  23. BUPRENORPHINE [Concomitant]
     Active Substance: BUPRENORPHINE
     Dosage: UNK; BUPRENORPHIN DIS 10MCG/HR
  24. BUSPIRONE [Concomitant]
     Active Substance: BUSPIRONE HYDROCHLORIDE
  25. COLCHICINE [Concomitant]
     Active Substance: COLCHICINE
  26. ELURYNG [Concomitant]
     Active Substance: ETHINYL ESTRADIOL\ETONOGESTREL
     Dosage: ELURYNG MIS
  27. FERAHEME [Concomitant]
     Active Substance: FERUMOXYTOL NON-STOICHIOMETRIC MAGNETITE
     Dosage: 510/17ML
  28. FUROSEMIDE [Concomitant]
     Active Substance: FUROSEMIDE
  29. FUROSEMIDE [Concomitant]
     Active Substance: FUROSEMIDE
  30. GABAPENTIN [Concomitant]
     Active Substance: GABAPENTIN
  31. LIDOCAINE [Concomitant]
     Active Substance: LIDOCAINE
     Dosage: PAD
  32. MOMETASONE [Concomitant]
     Active Substance: MOMETASONE
  33. MYCOPHENOLIC ACID [Concomitant]
     Active Substance: MYCOPHENOLIC ACID
  34. NALOXONE HCL [Concomitant]
     Active Substance: NALOXONE HYDROCHLORIDE
  35. OMEPRAZOLE [Concomitant]
     Active Substance: OMEPRAZOLE
  36. OXYCODONE [Concomitant]
     Active Substance: OXYCODONE
  37. PREDNISONE [Concomitant]
     Active Substance: PREDNISONE
  38. PREDNISONE [Concomitant]
     Active Substance: PREDNISONE
  39. TACROLIMUS [Concomitant]
     Active Substance: TACROLIMUS
  40. TRAMADOL HCL [Concomitant]
     Active Substance: TRAMADOL HYDROCHLORIDE
     Dosage: TRAMADOL HCL TAB 200MG ER
  41. CHLOROXINE\TRIAMCINOLONE ACETONIDE [Concomitant]
     Active Substance: CHLOROXINE\TRIAMCINOLONE ACETONIDE

REACTIONS (9)
  - Kidney infection [Recovering/Resolving]
  - Sleep disorder due to a general medical condition [Unknown]
  - Fluid retention [Unknown]
  - Localised infection [Recovering/Resolving]
  - Peripheral swelling [Unknown]
  - Urinary tract infection [Recovering/Resolving]
  - Dermatitis atopic [Recovering/Resolving]
  - Skin discomfort [Recovering/Resolving]
  - Rash [Recovering/Resolving]

NARRATIVE: CASE EVENT DATE: 20240101
